FAERS Safety Report 11782406 (Version 1)
Quarter: 2015Q4

REPORT INFORMATION
  Report Type: Report from Study
  Country: US (occurrence: US)
  Receive Date: 20151127
  Receipt Date: 20151127
  Transmission Date: 20160305
  Serious: Yes (Hospitalization)
  Sender: FDA-Public Use
  Company Number: US-ROCHE-1666973

PATIENT
  Age: 57 Year

DRUGS (2)
  1. BEVACIZUMAB [Suspect]
     Active Substance: BEVACIZUMAB
     Indication: BREAST CANCER METASTATIC
     Dosage: 10 MG/KG OVER 30 TO 90 MIN ON DAYS 1 AND 15?LAST DOSE PRIOR TO SERIOUS ADVERSE EVENT: 01/FEB/2010
     Route: 042
     Dates: start: 20090921
  2. PACLITAXEL. [Suspect]
     Active Substance: PACLITAXEL
     Indication: BREAST CANCER METASTATIC
     Dosage: 90 MG/M2 OVER 1 HOUR ON DAYS 1, 8 AND 15
     Route: 042
     Dates: start: 20090921

REACTIONS (1)
  - Vision blurred [Unknown]

NARRATIVE: CASE EVENT DATE: 20100215
